FAERS Safety Report 17898556 (Version 2)
Quarter: 2020Q2

REPORT INFORMATION
  Report Type: Report from Study
  Country: None (occurrence: US)
  Receive Date: 20200616
  Receipt Date: 20200618
  Transmission Date: 20200714
  Serious: Yes (Other)
  Sender: FDA-Public Use
  Company Number: US-ABBVIE-20K-163-3437595-00

PATIENT
  Sex: Male

DRUGS (1)
  1. VENCLEXTA [Suspect]
     Active Substance: VENETOCLAX
     Indication: CHRONIC MYELOMONOCYTIC LEUKAEMIA
     Dosage: TAKE 4 TABLET(S) BY MOUTH DAILY. TAKE WITH MEAL AND WATER SAME TIME EACH DAY
     Route: 048

REACTIONS (2)
  - Blood count abnormal [Unknown]
  - Off label use [Unknown]
